FAERS Safety Report 16629521 (Version 1)
Quarter: 2019Q3

REPORT INFORMATION
  Report Type: Spontaneous
  Country: US (occurrence: US)
  Receive Date: 20190612
  Receipt Date: 20190612
  Transmission Date: 20191004
  Serious: Yes (Hospitalization)
  Sender: FDA-Public Use
  Company Number: None

PATIENT
  Age: 46 Year
  Sex: Female

DRUGS (2)
  1. KISAQLI [Concomitant]
  2. LETROZOLE TAB 2.5MG [Suspect]
     Active Substance: LETROZOLE
     Dates: start: 201901

REACTIONS (1)
  - Infection [None]

NARRATIVE: CASE EVENT DATE: 20190612
